FAERS Safety Report 24454892 (Version 2)
Quarter: 2024Q4

REPORT INFORMATION
  Report Type: Spontaneous
  Country: NL (occurrence: NL)
  Receive Date: 20241017
  Receipt Date: 20241018
  Transmission Date: 20250115
  Serious: No
  Sender: ROCHE
  Company Number: None

PATIENT
  Age: 67 Year
  Sex: Male
  Weight: 99.0 kg

DRUGS (2)
  1. RITUXIMAB [Suspect]
     Active Substance: RITUXIMAB
     Indication: Follicular lymphoma
     Dosage: 1 X PER WEEK. AFTER 4 WEEKS -} 2X EVERY 4 WEEKS
     Route: 041
     Dates: start: 20230102
  2. LENALIDOMIDE [Suspect]
     Active Substance: LENALIDOMIDE
     Indication: Lymphoma
     Dosage: 1 PIECE ONCE A DAY
     Route: 048
     Dates: start: 20231002

REACTIONS (1)
  - Neuropathy peripheral [Not Recovered/Not Resolved]
